FAERS Safety Report 18152011 (Version 1)
Quarter: 2020Q3

REPORT INFORMATION
  Report Type: Report from Study
  Country: CA (occurrence: CA)
  Receive Date: 20200814
  Receipt Date: 20200814
  Transmission Date: 20201103
  Serious: Yes (Hospitalization, Other)
  Sender: FDA-Public Use
  Company Number: CA-JNJFOC-20200811813

PATIENT
  Age: 33 Year
  Sex: Female
  Weight: 78 kg

DRUGS (1)
  1. REMICADE [Suspect]
     Active Substance: INFLIXIMAB
     Indication: CROHN^S DISEASE
     Route: 042
     Dates: start: 20160420

REACTIONS (4)
  - Abdominal pain [Unknown]
  - Endometriosis [Recovering/Resolving]
  - Ovarian cyst [Unknown]
  - Intestinal resection [Unknown]

NARRATIVE: CASE EVENT DATE: 20200720
